FAERS Safety Report 20731729 (Version 3)
Quarter: 2024Q4

REPORT INFORMATION
  Report Type: Spontaneous
  Country: US (occurrence: US)
  Receive Date: 20220420
  Receipt Date: 20241113
  Transmission Date: 20250115
  Serious: No
  Sender: SANOFI AVENTIS
  Company Number: US-SA-SAC20220419001495

PATIENT
  Age: 70 Year
  Sex: Female

DRUGS (2)
  1. DUPIXENT [Suspect]
     Active Substance: DUPILUMAB
     Indication: Dermatitis atopic
     Dosage: 600.000MG 1X
     Route: 058
     Dates: start: 202203, end: 202203
  2. DUPIXENT [Suspect]
     Active Substance: DUPILUMAB
     Dosage: 300.000MG QOW
     Route: 058
     Dates: start: 2022

REACTIONS (2)
  - Paraesthesia [Not Recovered/Not Resolved]
  - Intentional dose omission [Unknown]

NARRATIVE: CASE EVENT DATE: 20220101
